FAERS Safety Report 9467033 (Version 1)
Quarter: 2013Q3

REPORT INFORMATION
  Report Type: Spontaneous
  Country: MX (occurrence: MX)
  Receive Date: 20130820
  Receipt Date: 20130820
  Transmission Date: 20140515
  Serious: Yes (Other)
  Sender: FDA-Public Use
  Company Number: MX-GLAXOSMITHKLINE-A1038286A

PATIENT
  Age: 76 Year
  Sex: Female
  Weight: 62 kg

DRUGS (1)
  1. LAMICTAL [Suspect]
     Indication: PETIT MAL EPILEPSY
     Dosage: 75MG PER DAY
     Route: 065

REACTIONS (4)
  - Petit mal epilepsy [Unknown]
  - Concussion [Unknown]
  - Balance disorder [Recovered/Resolved]
  - Wrong technique in drug usage process [Not Recovered/Not Resolved]
